FAERS Safety Report 13927762 (Version 2)
Quarter: 2017Q3

REPORT INFORMATION
  Report Type: Spontaneous
  Country: CN (occurrence: CN)
  Receive Date: 20170901
  Receipt Date: 20170929
  Transmission Date: 20171127
  Serious: Yes (Hospitalization, Other)
  Sender: FDA-Public Use
  Company Number: CN-ASTELLAS-2017US035110

PATIENT
  Age: 17 Year
  Sex: Male

DRUGS (4)
  1. METHYLPREDNISOLONE. [Concomitant]
     Active Substance: METHYLPREDNISOLONE
     Indication: NEPHROTIC SYNDROME
     Route: 048
     Dates: start: 20150930
  2. TACROLIMUS. [Suspect]
     Active Substance: TACROLIMUS
     Indication: NEPHROTIC SYNDROME
     Route: 048
     Dates: start: 20151005
  3. HEPARIN CALCIUM [Concomitant]
     Active Substance: HEPARIN CALCIUM
     Indication: NEPHROTIC SYNDROME
     Dosage: 4100 UIH, ONCE DAILY
     Route: 065
     Dates: start: 20150930
  4. TORSEMIDE. [Concomitant]
     Active Substance: TORSEMIDE
     Indication: NEPHROTIC SYNDROME
     Route: 042
     Dates: start: 20150930

REACTIONS (3)
  - Off label use [Unknown]
  - Immunosuppressant drug level decreased [Unknown]
  - Drug-induced liver injury [Recovered/Resolved]

NARRATIVE: CASE EVENT DATE: 20151008
